FAERS Safety Report 5258975-7 (Version None)
Quarter: 2007Q1

REPORT INFORMATION
  Report Type: 
  Country: None (occurrence: None)
  Receive Date: 20070308
  Receipt Date: 20070227
  Transmission Date: 20070707
  Serious: Yes (Hospitalization)
  Sender: FDA-Public Use
  Company Number: JP-ROCHE-485106

PATIENT
  Age: 21 Year
  Sex: Male

DRUGS (3)
  1. TAMIFLU [Suspect]
     Indication: INFLUENZA
     Route: 048
     Dates: start: 20070222, end: 20070226
  2. DEPAKENE [Concomitant]
     Dosage: FORM REPORTED AS ORAL, NOT OTHER SPECIFIED.
     Route: 048
  3. DEPAKENE [Concomitant]
     Route: 048

REACTIONS (1)
  - PANCREATITIS ACUTE [None]
